FAERS Safety Report 19684666 (Version 3)
Quarter: 2022Q1

REPORT INFORMATION
  Report Type: Spontaneous
  Country: GR (occurrence: GR)
  Receive Date: 20210811
  Receipt Date: 20220217
  Transmission Date: 20220424
  Serious: Yes (Other)
  Sender: FDA-Public Use
  Company Number: GR-CTRS-2021000010

PATIENT
  Age: 58 Year
  Sex: Male

DRUGS (6)
  1. DEXAMETHASONE [Suspect]
     Active Substance: DEXAMETHASONE
     Indication: Plasma cell leukaemia
     Dosage: UNK
  2. DEXAMETHASONE [Suspect]
     Active Substance: DEXAMETHASONE
     Dosage: UNK BOLUS
     Dates: start: 2018
  3. BORTEZOMIB [Suspect]
     Active Substance: BORTEZOMIB
     Indication: Plasma cell leukaemia
     Dosage: UNK
     Dates: start: 2018
  4. CYCLOPHOSPHAMIDE [Suspect]
     Active Substance: CYCLOPHOSPHAMIDE
     Indication: Plasma cell leukaemia
     Dosage: UNK BOLUS
     Dates: start: 2018
  5. DOXORUBICIN HYDROCHLORIDE [Suspect]
     Active Substance: DOXORUBICIN HYDROCHLORIDE
     Indication: Plasma cell leukaemia
     Dosage: UNK BOLUS
     Dates: start: 2018
  6. DARATUMUMAB [Suspect]
     Active Substance: DARATUMUMAB
     Indication: Plasma cell leukaemia
     Dosage: BOLUS
     Dates: start: 2018

REACTIONS (15)
  - Haematotoxicity [Unknown]
  - Guillain-Barre syndrome [Recovered/Resolved]
  - Cytomegalovirus infection [Unknown]
  - Respiratory tract infection [Unknown]
  - Cytomegalovirus viraemia [Recovered/Resolved]
  - Pyrexia [Unknown]
  - Paraesthesia [Recovered/Resolved]
  - Dysstasia [Recovered/Resolved]
  - Dysarthria [Recovered/Resolved]
  - Lymphopenia [Unknown]
  - Dysphagia [Recovered/Resolved]
  - Peripheral motor neuropathy [Recovered/Resolved]
  - Muscular weakness [Recovered/Resolved]
  - Product use in unapproved indication [Unknown]
  - Off label use [Unknown]

NARRATIVE: CASE EVENT DATE: 20181201
